FAERS Safety Report 10193104 (Version 1)
Quarter: 2014Q2

REPORT INFORMATION
  Report Type: Spontaneous
  Country: US (occurrence: US)
  Receive Date: 20140524
  Receipt Date: 20140524
  Transmission Date: 20141212
  Serious: No
  Sender: FDA-Public Use
  Company Number: US-SANOFI-AVENTIS-2013SA041416

PATIENT
  Age: 72 Year
  Sex: Female

DRUGS (5)
  1. LANTUS SOLOSTAR [Suspect]
     Indication: DIABETES MELLITUS
     Dosage: DOSE:20 UNIT(S)
     Route: 058
     Dates: start: 201304
  2. LANTUS SOLOSTAR [Suspect]
     Indication: DIABETES MELLITUS
     Dosage: DOSE:28 UNIT(S)
     Route: 058
  3. SOLOSTAR [Suspect]
     Indication: DEVICE THERAPY
     Dates: start: 201304
  4. SOLOSTAR [Suspect]
     Indication: DEVICE THERAPY
  5. COUMADIN [Concomitant]
     Dosage: SMALL DOSE

REACTIONS (1)
  - International normalised ratio increased [Unknown]
